FAERS Safety Report 23263669 (Version 2)
Quarter: 2024Q2

REPORT INFORMATION
  Report Type: Spontaneous
  Country: IT (occurrence: IT)
  Receive Date: 20231205
  Receipt Date: 20240402
  Transmission Date: 20240715
  Serious: Yes (Other)
  Sender: FDA-Public Use
  Company Number: None

PATIENT
  Age: 84 Year
  Sex: Female

DRUGS (5)
  1. ELIQUIS [Suspect]
     Active Substance: APIXABAN
     Indication: Atrial fibrillation
     Dosage: ELIQUIS: 60CPR RIV 5MG - DOSAGE SCHEDULE: 2 CP/DAY
     Route: 048
  2. BISOPROLOL [Concomitant]
     Active Substance: BISOPROLOL\BISOPROLOL FUMARATE
     Indication: Hypertensive heart disease
     Dosage: CARDICOR: 28CPR RIV 1.25MG - 1 CP/DAY
     Route: 048
     Dates: start: 2022
  3. SPIRIVA RESPIMAT [Concomitant]
     Active Substance: TIOTROPIUM BROMIDE
     Indication: Chronic obstructive pulmonary disease
     Dosage: SPIRIVA RESPI SOL 1 INAL60EROG - 2 INHALATIONS/DAY
     Route: 048
     Dates: start: 2022
  4. LASIX [Concomitant]
     Active Substance: FUROSEMIDE
     Indication: Hypertensive heart disease
     Dosage: LASIX: 30CPR 25MG - 1 CP/DAY
     Route: 048
     Dates: start: 2022
  5. OMEPRAZOLO ABC [Concomitant]
     Indication: Gastrooesophageal reflux disease
     Dosage: OMEPRAZOLE ABC: 28CPS 20MG- 1 CP/DAY
     Route: 048
     Dates: start: 2022

REACTIONS (2)
  - Renal failure [Not Recovered/Not Resolved]
  - Glomerular filtration rate decreased [Not Recovered/Not Resolved]

NARRATIVE: CASE EVENT DATE: 20221201
